FAERS Safety Report 14956967 (Version 1)
Quarter: 2018Q2

REPORT INFORMATION
  Report Type: Report from Study
  Country: EG (occurrence: EG)
  Receive Date: 20180531
  Receipt Date: 20180531
  Transmission Date: 20180711
  Serious: Yes (Death, Other)
  Sender: FDA-Public Use
  Company Number: EG-SA-2018SA137041

PATIENT
  Age: 65 Year
  Sex: Male

DRUGS (4)
  1. METACARDIA [Concomitant]
  2. INSULIN GLARGINE [Suspect]
     Active Substance: INSULIN GLARGINE
     Indication: TYPE 2 DIABETES MELLITUS
     Dosage: UNK UNK,UNK
     Route: 051
     Dates: start: 20180205, end: 20180415
  3. ALTIAZEM [Concomitant]
     Active Substance: DILTIAZEM HYDROCHLORIDE
  4. HUMULIN NOS [Concomitant]
     Active Substance: INSULIN HUMAN
     Dosage: 25IU, 30IU, 20IU

REACTIONS (1)
  - Cardiac arrest [Fatal]

NARRATIVE: CASE EVENT DATE: 20180415
